FAERS Safety Report 6055806-2 (Version None)
Quarter: 2009Q1

REPORT INFORMATION
  Report Type: 
  Country: None (occurrence: None)
  Receive Date: 20090128
  Receipt Date: 20090120
  Transmission Date: 20090719
  Serious: Yes (Other)
  Sender: FDA-Public Use
  Company Number: US-JNJCH-2009001910

PATIENT
  Age: 75 Year
  Sex: Female
  Weight: 56.7 kg

DRUGS (4)
  1. LUBRIDERM DAILY MOISTURE FRAGRANCE FREE [Suspect]
     Indication: DRY SKIN
     Dosage: TEXT:HANDFUL FACE, 3-4X, BODY, 1X PER DAY
     Route: 061
  2. VYTORIN [Suspect]
     Indication: BLOOD CHOLESTEROL
     Dosage: TEXT:1 TABLET DAILY
     Route: 048
  3. VYTORIN [Suspect]
     Route: 065
  4. MULTI-VITAMINS [Concomitant]
     Indication: MEDICAL DIET
     Dosage: TEXT:1 TABLET DAILY
     Route: 048

REACTIONS (6)
  - APPLICATION SITE REACTION [None]
  - CONDITION AGGRAVATED [None]
  - ERYTHEMA [None]
  - EYE IRRITATION [None]
  - EYE SWELLING [None]
  - PAIN [None]
